FAERS Safety Report 6739753-6 (Version None)
Quarter: 2010Q2

REPORT INFORMATION
  Report Type: 
  Country: None (occurrence: None)
  Receive Date: 20100525
  Receipt Date: 20100512
  Transmission Date: 20101027
  Serious: Yes (Hospitalization)
  Sender: FDA-Public Use
  Company Number: NL-MEDIMMUNE-MEDI-0011144

PATIENT
  Sex: Male

DRUGS (6)
  1. SYNAGIS [Suspect]
     Route: 030
     Dates: start: 20091007, end: 20091007
  2. SYNAGIS [Suspect]
     Route: 030
     Dates: start: 20091105, end: 20100325
  3. MACROGOL [Concomitant]
  4. OMEPRAZOLE [Concomitant]
  5. LEVOTHYROXINE SODIUM [Concomitant]
  6. COMBIVENT [Concomitant]

REACTIONS (3)
  - CARDIAC FAILURE [None]
  - PULMONARY HYPERTENSION [None]
  - RESPIRATORY FAILURE [None]
